FAERS Safety Report 18897848 (Version 1)
Quarter: 2021Q1

REPORT INFORMATION
  Report Type: Report from Study
  Country: None (occurrence: CA)
  Receive Date: 20210216
  Receipt Date: 20210216
  Transmission Date: 20210420
  Serious: Yes (Other)
  Sender: FDA-Public Use
  Company Number: CA-ABBVIE-20K-028-3573204-00

PATIENT
  Age: 26 Year
  Sex: Female

DRUGS (2)
  1. HUMIRA [Suspect]
     Active Substance: ADALIMUMAB
     Route: 058
     Dates: start: 202101
  2. HUMIRA [Suspect]
     Active Substance: ADALIMUMAB
     Indication: COLITIS ULCERATIVE
     Route: 058
     Dates: start: 20190131, end: 20200131

REACTIONS (6)
  - Mastitis [Not Recovered/Not Resolved]
  - Maternal exposure during pregnancy [Unknown]
  - Drug level increased [Unknown]
  - Fistula [Not Recovered/Not Resolved]
  - Seasonal allergy [Unknown]
  - Caesarean section [Unknown]

NARRATIVE: CASE EVENT DATE: 2021
